FAERS Safety Report 20403969 (Version 1)
Quarter: 2022Q1

REPORT INFORMATION
  Report Type: Report from Study
  Country: US (occurrence: US)
  Receive Date: 20220131
  Receipt Date: 20220131
  Transmission Date: 20220423
  Serious: Yes (Other)
  Sender: FDA-Public Use
  Company Number: US-BRISTOL-MYERS SQUIBB COMPANY-BMS-2022-013618

PATIENT
  Age: 62 Year
  Sex: Female

DRUGS (1)
  1. APIXABAN [Suspect]
     Active Substance: APIXABAN
     Indication: Cardiac disorder
     Dosage: UNK
     Route: 065

REACTIONS (3)
  - Haemorrhagic disorder [Unknown]
  - Contusion [Unknown]
  - Intentional product use issue [Unknown]
